FAERS Safety Report 13267103 (Version 1)
Quarter: 2017Q1

REPORT INFORMATION
  Report Type: Spontaneous
  Country: DE (occurrence: DE)
  Receive Date: 20170224
  Receipt Date: 20170224
  Transmission Date: 20170428
  Serious: Yes (Hospitalization)
  Sender: FDA-Public Use
  Company Number: DE-BION-006011

PATIENT
  Age: 32 Year
  Sex: Female

DRUGS (3)
  1. VENLAFAXINE/VENLAFAXINE HYDROCHLORIDE [Suspect]
     Active Substance: VENLAFAXINE HYDROCHLORIDE
     Dosage: MAXIMUM DOSE OF 9.75 G
  2. MIRTAZAPINE. [Suspect]
     Active Substance: MIRTAZAPINE
     Dosage: MAXIMUM DOSE OF 540 MG
  3. VALPROIC ACID. [Suspect]
     Active Substance: VALPROIC ACID
     Dosage: MAXIMUM OF 56 G

REACTIONS (7)
  - Pneumonia aspiration [Recovered/Resolved]
  - Cardiopulmonary failure [Recovered/Resolved]
  - Overdose [Unknown]
  - Hyperammonaemia [Recovered/Resolved]
  - Depressed level of consciousness [Recovered/Resolved]
  - Hypotension [Recovered/Resolved]
  - Thrombocytopenia [Recovered/Resolved]
